FAERS Safety Report 10746511 (Version 3)
Quarter: 2015Q1

REPORT INFORMATION
  Report Type: Report from Study
  Country: PH (occurrence: PH)
  Receive Date: 20150128
  Receipt Date: 20150325
  Transmission Date: 20150721
  Serious: Yes (Hospitalization)
  Sender: FDA-Public Use
  Company Number: PH-B.I. PHARMACEUTICALS,INC./RIDGEFIELD-2015-BI-00178BI

PATIENT
  Age: 54 Year
  Sex: Male
  Weight: 60.9 kg

DRUGS (10)
  1. HUMALIN 70/30 [Concomitant]
     Indication: HYPERGLYCAEMIA
     Dosage: 42 U
     Route: 058
  2. BI 10773 [Suspect]
     Active Substance: EMPAGLIFLOZIN
     Indication: TYPE 2 DIABETES MELLITUS
     Route: 048
     Dates: end: 20141216
  3. TRIMETAZIDIN [Concomitant]
     Indication: ANGINA PECTORIS
     Dosage: 70 MG
     Route: 048
     Dates: start: 20140822
  4. VIT B COMPLEX [Concomitant]
     Indication: SUPPLEMENTATION THERAPY
     Route: 048
  5. SIMVASTAT [Concomitant]
     Indication: DYSLIPIDAEMIA
     Dosage: 20 MG
     Route: 048
     Dates: end: 20150101
  6. ISDN (ISOSORBIDE DINITRATE) [Concomitant]
     Active Substance: ISOSORBIDE DINITRATE
     Indication: ANGINA PECTORIS
     Dosage: 5 MG
     Route: 060
     Dates: start: 20140822
  7. ISMN [Concomitant]
     Active Substance: ISOSORBIDE MONONITRATE
     Indication: ANGINA PECTORIS
     Dosage: 30 MG
     Route: 048
     Dates: start: 20140822
  8. METFORM [Concomitant]
     Indication: HYPERGLYCAEMIA
     Dosage: 500 MG
     Route: 048
  9. LOSART [Concomitant]
     Indication: HYPERTENSION
     Dosage: 50 MG
     Route: 048
     Dates: end: 20150101
  10. CLOPIDOGREL [Concomitant]
     Active Substance: CLOPIDOGREL BISULFATE
     Indication: ANTIPLATELET THERAPY
     Dosage: 75 MG
     Route: 048

REACTIONS (3)
  - Septic shock [Recovered/Resolved]
  - Pneumonia [Recovered/Resolved]
  - Myocardial ischaemia [Unknown]

NARRATIVE: CASE EVENT DATE: 20141231
